FAERS Safety Report 8130944-9 (Version None)
Quarter: 2012Q1

REPORT INFORMATION
  Report Type: 
  Country: None (occurrence: None)
  Receive Date: 20120213
  Receipt Date: 20120207
  Transmission Date: 20120608
  Serious: Yes (Other)
  Sender: FDA-Public Use
  Company Number: US-PFIZER INC-2012015771

PATIENT
  Sex: Female

DRUGS (6)
  1. NORTRIPTYLINE [Concomitant]
     Indication: PAIN
     Dosage: 50 MG, DAILY
  2. NICODERM [Suspect]
     Dosage: UNK
  3. FISH OIL [Concomitant]
     Dosage: UNK
  4. GABAPENTIN [Suspect]
     Indication: LIMB DISCOMFORT
     Dosage: 300 MG, 4X/DAY
     Route: 048
     Dates: start: 20100101
  5. GABAPENTIN [Suspect]
     Indication: POLYNEUROPATHY
  6. VITAMIN D [Concomitant]
     Dosage: UNK

REACTIONS (3)
  - HYPERTENSION [None]
  - ABNORMAL DREAMS [None]
  - PERSONALITY CHANGE [None]
